FAERS Safety Report 9444258 (Version 1)
Quarter: 2013Q3

REPORT INFORMATION
  Report Type: Spontaneous
  Country: US (occurrence: None)
  Receive Date: 20130805
  Receipt Date: 20130805
  Transmission Date: 20140515
  Serious: Yes (Death)
  Sender: FDA-Public Use
  Company Number: SYM-2013-07186

PATIENT
  Age: 59 Year
  Sex: Male

DRUGS (1)
  1. XENAZINE [Suspect]
     Indication: HUNTINGTON^S DISEASE
     Dosage: 3 IN 1 D, ORAL
     Route: 048
     Dates: start: 20130429, end: 20130702

REACTIONS (1)
  - Death [None]
